FAERS Safety Report 9472289 (Version 1)
Quarter: 2013Q3

REPORT INFORMATION
  Report Type: Spontaneous
  Country: US (occurrence: US)
  Receive Date: 20130823
  Receipt Date: 20130823
  Transmission Date: 20140515
  Serious: No
  Sender: FDA-Public Use
  Company Number: US-JNJFOC-20130806286

PATIENT
  Age: 44 Year
  Sex: Female
  Weight: 79.38 kg

DRUGS (8)
  1. DURAGESIC [Suspect]
     Indication: FIBROMYALGIA
     Route: 062
     Dates: start: 20130730
  2. DURAGESIC [Suspect]
     Indication: BACK PAIN
     Route: 062
     Dates: start: 20130730
  3. DURAGESIC [Suspect]
     Indication: INTERVERTEBRAL DISC PROTRUSION
     Route: 062
     Dates: start: 20130730
  4. NORTRIPTYLINE [Concomitant]
     Indication: FIBROMYALGIA
     Dosage: 20 MG (10 MG TABLET) AS NEEDED
     Route: 048
     Dates: start: 201306
  5. GABAPENTIN [Concomitant]
     Indication: PAIN
     Route: 048
     Dates: start: 20130731
  6. HYDROCODONE [Concomitant]
     Dosage: 10/325 MG/ONCE IN 6 HOURS/ AS NEEDED
     Route: 048
  7. LORAZEPAM [Concomitant]
     Dosage: HALF TO QUARTER OF TABLET ONCE A DAY
     Route: 048
  8. MOBIC [Concomitant]
     Route: 048
     Dates: start: 201305

REACTIONS (4)
  - Hyperhidrosis [Not Recovered/Not Resolved]
  - Product quality issue [Not Recovered/Not Resolved]
  - Product quality issue [Not Recovered/Not Resolved]
  - Poor quality drug administered [Not Recovered/Not Resolved]
